FAERS Safety Report 6669511-2 (Version None)
Quarter: 2010Q2

REPORT INFORMATION
  Report Type: 
  Country: None (occurrence: None)
  Receive Date: 20100406
  Receipt Date: 20100329
  Transmission Date: 20101027
  Serious: Yes (Death, Hospitalization, Other)
  Sender: FDA-Public Use
  Company Number: US-AMGEN-QUU401365

PATIENT
  Sex: Male

DRUGS (7)
  1. NPLATE [Suspect]
     Indication: IDIOPATHIC THROMBOCYTOPENIC PURPURA
     Dates: start: 20100209, end: 20100308
  2. IMMU-G [Concomitant]
     Dates: start: 20070616
  3. NEURONTIN [Concomitant]
  4. ALFALFA [Concomitant]
  5. CORTICOSTEROIDS [Concomitant]
     Dates: start: 20070627
  6. RITUXIMAB [Concomitant]
     Dates: start: 20070717
  7. VITAMINS NOS [Concomitant]

REACTIONS (5)
  - BIOPSY BONE MARROW ABNORMAL [None]
  - BLOOD URINE PRESENT [None]
  - BONE MARROW RETICULIN FIBROSIS [None]
  - HAEMATOCHEZIA [None]
  - HAEMORRHAGE INTRACRANIAL [None]
